FAERS Safety Report 10811569 (Version 1)
Quarter: 2015Q1

REPORT INFORMATION
  Report Type: Report from Study
  Country: US (occurrence: US)
  Receive Date: 20150217
  Receipt Date: 20150217
  Transmission Date: 20150721
  Serious: No
  Sender: FDA-Public Use
  Company Number: US-ABBVIE-14K-163-1226382-00

PATIENT
  Sex: Female

DRUGS (4)
  1. UNKNOWN THYROID MEDICINE [Concomitant]
     Indication: THYROID DISORDER
     Dosage: 0.2 MG OR 0.3 MG
     Route: 048
  2. ASACOL [Concomitant]
     Active Substance: MESALAMINE
     Indication: COLITIS ULCERATIVE
     Route: 048
  3. HUMIRA [Suspect]
     Active Substance: ADALIMUMAB
     Indication: COLITIS ULCERATIVE
     Dosage: 05 AUG 2013 OR 06 AUG 2013
     Dates: start: 201308
  4. PORTIA 21 [Concomitant]
     Indication: CONTRACEPTION
     Route: 048

REACTIONS (1)
  - Injection site mass [Not Recovered/Not Resolved]
